FAERS Safety Report 20182776 (Version 3)
Quarter: 2022Q1

REPORT INFORMATION
  Report Type: Spontaneous
  Country: DE (occurrence: DE)
  Receive Date: 20211214
  Receipt Date: 20220128
  Transmission Date: 20220423
  Serious: Yes (Other)
  Sender: FDA-Public Use
  Company Number: DE-ALXN-A202113578

PATIENT
  Sex: Female

DRUGS (2)
  1. ULTOMIRIS [Suspect]
     Active Substance: RAVULIZUMAB-CWVZ
     Dosage: 2400 MG, UNK
     Route: 065
     Dates: start: 20211108
  2. ULTOMIRIS [Suspect]
     Active Substance: RAVULIZUMAB-CWVZ
     Indication: Paroxysmal nocturnal haemoglobinuria
     Dosage: 3000 MG, UNK
     Route: 065
     Dates: start: 202102

REACTIONS (2)
  - Breakthrough haemolysis [Unknown]
  - Accidental underdose [Unknown]

NARRATIVE: CASE EVENT DATE: 20211108
